FAERS Safety Report 6252504-7 (Version None)
Quarter: 2009Q2

REPORT INFORMATION
  Report Type: 
  Country: None (occurrence: None)
  Receive Date: 20090629
  Receipt Date: 20090616
  Transmission Date: 20091009
  Serious: Yes (Death)
  Sender: FDA-Public Use
  Company Number: 2009AL000465

PATIENT
  Age: 45 Year
  Sex: Male
  Weight: 118.3888 kg

DRUGS (6)
  1. DIGOXIN [Suspect]
     Dosage: 0.25MG, DAILY, PO
     Route: 048
  2. COREG [Concomitant]
  3. FUROSEMIDE [Concomitant]
  4. POTASSIUM CHLORIDE [Concomitant]
  5. ALTACE [Concomitant]
  6. LONOX [Concomitant]

REACTIONS (18)
  - ABDOMINAL DISCOMFORT [None]
  - ANXIETY [None]
  - ASTHENIA [None]
  - BLOOD PRESSURE INCREASED [None]
  - COUGH [None]
  - DIARRHOEA [None]
  - DYSPNOEA [None]
  - ECONOMIC PROBLEM [None]
  - EMOTIONAL DISORDER [None]
  - FAMILY STRESS [None]
  - FEAR [None]
  - GASTROENTERITIS VIRAL [None]
  - INJURY [None]
  - NAUSEA [None]
  - OEDEMA PERIPHERAL [None]
  - PAIN [None]
  - SOCIAL PROBLEM [None]
  - WEIGHT INCREASED [None]
